FAERS Safety Report 4738834-6 (Version None)
Quarter: 2005Q3

REPORT INFORMATION
  Report Type: 
  Country: None (occurrence: None)
  Receive Date: 20050804
  Receipt Date: 20050721
  Transmission Date: 20060218
  Serious: Yes (Hospitalization)
  Sender: FDA-Public Use
  Company Number: 2005JP001480

PATIENT
  Age: 58 Year
  Sex: Female

DRUGS (1)
  1. PROGRAF [Suspect]
     Dosage: 6.00 MG, UNKNOWN/D, ORAL
     Route: 048
     Dates: start: 20050707, end: 20050716

REACTIONS (2)
  - DYSKINESIA [None]
  - NEUROSIS [None]
